FAERS Safety Report 14861912 (Version 1)
Quarter: 2018Q2

REPORT INFORMATION
  Report Type: Spontaneous
  Country: SI (occurrence: SI)
  Receive Date: 20180508
  Receipt Date: 20180508
  Transmission Date: 20180711
  Serious: Yes (Other)
  Sender: FDA-Public Use
  Company Number: SI-ROCHE-2118024

PATIENT
  Age: 52 Year
  Sex: Female

DRUGS (7)
  1. VINORELBINA [Suspect]
     Active Substance: VINORELBINE TARTRATE
     Indication: BREAST CANCER
     Dosage: 10 MG/ML CONCENTRATE FOR SOLUTION FOR INFUSION
     Route: 042
     Dates: start: 20180410, end: 20180410
  2. HERCEPTIN [Suspect]
     Active Substance: TRASTUZUMAB
     Indication: BREAST CANCER
     Dosage: 150 MG POWDER FOR CONCENTRATE FOR SOLUTION FOR INFUSION
     Route: 042
     Dates: start: 20180410, end: 20180410
  3. NEXIUM [Concomitant]
     Active Substance: ESOMEPRAZOLE MAGNESIUM
     Route: 065
  4. MEDROL [Concomitant]
     Active Substance: METHYLPREDNISOLONE
     Dosage: ACCORDING TO THE SCHEME
     Route: 065
  5. ANALGIN (SLOVENIA) [Concomitant]
     Route: 065
  6. DUROGESIC [Concomitant]
     Active Substance: FENTANYL
     Route: 065
  7. SEVREDOL [Concomitant]
     Active Substance: MORPHINE
     Route: 065

REACTIONS (6)
  - Hypertension [Recovered/Resolved]
  - Angina pectoris [Recovered/Resolved]
  - Chills [Recovered/Resolved]
  - Erythema [Recovered/Resolved]
  - Nausea [Recovered/Resolved]
  - Oxygen saturation decreased [Recovered/Resolved]

NARRATIVE: CASE EVENT DATE: 20180410
